FAERS Safety Report 12923205 (Version 2)
Quarter: 2016Q4

REPORT INFORMATION
  Report Type: Spontaneous
  Country: FR (occurrence: FR)
  Receive Date: 20161109
  Receipt Date: 20161128
  Transmission Date: 20170207
  Serious: Yes (Hospitalization, Other)
  Sender: FDA-Public Use
  Company Number: FR-GLAXOSMITHKLINE-FR2016GSK162360

PATIENT
  Age: 19 Month
  Sex: Female
  Weight: 15 kg

DRUGS (3)
  1. RIVOTRIL [Concomitant]
     Active Substance: CLONAZEPAM
  2. DEXTRION G5 [Concomitant]
     Active Substance: CALCIUM GLUCONATE\DEXTROSE\POTASSIUM CHLORIDE\SODIUM CHLORIDE
  3. ZOVIRAX [Suspect]
     Active Substance: ACYCLOVIR
     Indication: MENINGITIS VIRAL
     Dosage: UNK
     Route: 042
     Dates: start: 20161009, end: 20161010

REACTIONS (3)
  - Skin necrosis [Recovering/Resolving]
  - Injection site extravasation [Recovering/Resolving]
  - Skin oedema [Recovering/Resolving]

NARRATIVE: CASE EVENT DATE: 20161009
